FAERS Safety Report 7199134-0 (Version None)
Quarter: 2010Q4

REPORT INFORMATION
  Report Type: 
  Country: None (occurrence: None)
  Receive Date: 20101228
  Receipt Date: 20101214
  Transmission Date: 20110411
  Serious: Yes (Other)
  Sender: FDA-Public Use
  Company Number: TW-RANBAXY-2010RR-40526

PATIENT
  Age: 52 Year
  Sex: Female

DRUGS (4)
  1. PARACETAMOL [Suspect]
     Indication: OROPHARYNGEAL PAIN
  2. MEFENAMIC ACID [Suspect]
     Indication: OROPHARYNGEAL PAIN
  3. CHLORPHENAMINE [Suspect]
     Indication: OROPHARYNGEAL PAIN
  4. TMN-1 [Suspect]
     Dosage: UNK

REACTIONS (2)
  - GINGIVAL BLEEDING [None]
  - THROMBOCYTOPENIA [None]
